FAERS Safety Report 14978857 (Version 2)
Quarter: 2018Q3

REPORT INFORMATION
  Report Type: Spontaneous
  Country: US (occurrence: US)
  Receive Date: 20180606
  Receipt Date: 20180713
  Transmission Date: 20181010
  Serious: No
  Sender: FDA-Public Use
  Company Number: US-ASTRAZENECA-2018SE61877

PATIENT
  Age: 49 Year
  Sex: Female

DRUGS (2)
  1. PULMICORT FLEXHALER [Suspect]
     Active Substance: BUDESONIDE
     Route: 055
  2. PULMICORT FLEXHALER [Suspect]
     Active Substance: BUDESONIDE
     Dosage: TWO PUFFS A DAY
     Route: 055
     Dates: start: 20180422

REACTIONS (5)
  - Sinusitis [Unknown]
  - Asthma [Unknown]
  - Device failure [Unknown]
  - Circumstance or information capable of leading to device use error [Unknown]
  - Intentional device misuse [Unknown]

NARRATIVE: CASE EVENT DATE: 2018
